FAERS Safety Report 24781215 (Version 1)
Quarter: 2024Q4

REPORT INFORMATION
  Report Type: Report from Study
  Country: US (occurrence: US)
  Receive Date: 20241227
  Receipt Date: 20241227
  Transmission Date: 20250115
  Serious: Yes (Other)
  Sender: ABBVIE
  Company Number: US-ABBVIE-6062373

PATIENT
  Sex: Female

DRUGS (1)
  1. ELAHERE [Suspect]
     Active Substance: MIRVETUXIMAB SORAVTANSINE-GYNX
     Indication: Ovarian cancer
     Dosage: 6 TOTAL TREATMENTS
     Route: 042
     Dates: start: 20240828

REACTIONS (5)
  - Basal cell carcinoma [Recovering/Resolving]
  - Carbohydrate antigen 125 increased [Recovered/Resolved]
  - Vision blurred [Unknown]
  - Fatigue [Unknown]
  - Hyperkeratosis [Unknown]

NARRATIVE: CASE EVENT DATE: 20240101
